FAERS Safety Report 7416344-5 (Version None)
Quarter: 2011Q2

REPORT INFORMATION
  Report Type: 
  Country: None (occurrence: None)
  Receive Date: 20110414
  Receipt Date: 20110406
  Transmission Date: 20111010
  Serious: Yes (Death)
  Sender: FDA-Public Use
  Company Number: US-GILEAD-2011-0038000

PATIENT
  Sex: Male

DRUGS (15)
  1. METOPROLOL TARTRATE [Concomitant]
  2. PROTONIX [Concomitant]
  3. ZOCOR [Concomitant]
  4. SERENOA REPENS [Concomitant]
  5. REVATIO [Concomitant]
  6. CENTAB [Concomitant]
  7. LASIX [Concomitant]
  8. LETAIRIS [Suspect]
     Indication: PULMONARY HYPERTENSION
     Route: 048
     Dates: start: 20090202, end: 20110326
  9. LANOXIN [Concomitant]
  10. ASPIRIN [Concomitant]
  11. NIASPAN [Concomitant]
  12. CALCIUM WITH VITAMIN D [Concomitant]
  13. CO Q-10 [Concomitant]
  14. COUMADIN [Concomitant]
  15. PLAVIX [Concomitant]

REACTIONS (1)
  - CEREBRAL HAEMORRHAGE [None]
